FAERS Safety Report 23371236 (Version 2)
Quarter: 2024Q1

REPORT INFORMATION
  Report Type: Spontaneous
  Country: US (occurrence: US)
  Receive Date: 20240105
  Receipt Date: 20240108
  Transmission Date: 20240409
  Serious: Yes (Other)
  Sender: FDA-Public Use
  Company Number: US-JNJFOC-20231284344

PATIENT
  Age: 65 Year
  Sex: Male

DRUGS (1)
  1. XARELTO [Suspect]
     Active Substance: RIVAROXABAN
     Indication: Product used for unknown indication
     Route: 065

REACTIONS (5)
  - Hernia [Unknown]
  - Neuropathy peripheral [Unknown]
  - Pulmonary thrombosis [Unknown]
  - Oedema peripheral [Unknown]
  - Skin discolouration [Unknown]

NARRATIVE: CASE EVENT DATE: 20231228
